FAERS Safety Report 6436077-1 (Version None)
Quarter: 2009Q4

REPORT INFORMATION
  Report Type: 
  Country: None (occurrence: None)
  Receive Date: 20091111
  Receipt Date: 20091102
  Transmission Date: 20100525
  Serious: Yes (Hospitalization)
  Sender: FDA-Public Use
  Company Number: FR-ABBOTT-09P-056-0606304-00

PATIENT
  Sex: Male

DRUGS (8)
  1. NIASPAN [Suspect]
     Indication: DYSLIPIDAEMIA
     Route: 048
     Dates: start: 20060301, end: 20080413
  2. PLAVIX [Suspect]
     Indication: THROMBOSIS PROPHYLAXIS
     Route: 048
     Dates: start: 20060301, end: 20080413
  3. NEXIUM [Concomitant]
     Indication: PROPHYLAXIS
     Route: 048
  4. ASPEGIC 1000 [Concomitant]
     Indication: THROMBOSIS PROPHYLAXIS
     Dosage: FORM STRENGTH: 100 MILLIGRAMS
     Route: 048
     Dates: start: 20060301, end: 20080413
  5. DETENSIEL [Concomitant]
     Indication: HYPERTENSION
     Route: 048
  6. LASILIX [Concomitant]
     Indication: HYPERTENSION
     Route: 048
  7. TAHOR [Concomitant]
     Indication: HYPERCHOLESTEROLAEMIA
     Route: 048
  8. XATRAL [Concomitant]
     Indication: BENIGN PROSTATIC HYPERPLASIA
     Route: 048

REACTIONS (3)
  - OEDEMA PERIPHERAL [None]
  - PAIN IN EXTREMITY [None]
  - THROMBOCYTOPENIA [None]
